FAERS Safety Report 26045882 (Version 1)
Quarter: 2025Q4

REPORT INFORMATION
  Report Type: Spontaneous
  Country: US (occurrence: US)
  Receive Date: 20251114
  Receipt Date: 20251114
  Transmission Date: 20260118
  Serious: Yes (Hospitalization, Other)
  Sender: RANBAXY
  Company Number: US-SUN PHARMACEUTICAL INDUSTRIES INC-2025R1-535826

PATIENT
  Age: 69 Year
  Sex: Female

DRUGS (7)
  1. LITHIUM [Suspect]
     Active Substance: LITHIUM
     Indication: Schizoaffective disorder
     Dosage: 300 MILLIGRAM, QD
     Route: 065
  2. LITHIUM [Suspect]
     Active Substance: LITHIUM
     Dosage: 400 MILLIGRAM, QD
     Route: 065
  3. VALPROATE [Suspect]
     Active Substance: VALPROIC ACID
     Indication: Schizoaffective disorder
     Dosage: UNK
     Route: 065
  4. ARIPIPRAZOLE [Concomitant]
     Active Substance: ARIPIPRAZOLE
     Indication: Schizoaffective disorder
     Dosage: 5 MG QAM AND 25 MG QHS
     Route: 065
  5. Clonazepam humax [Concomitant]
     Indication: Schizoaffective disorder
     Dosage: 0.75 MILLIGRAM, BID
     Route: 065
  6. DIVALPROEX SODIUM ER [Concomitant]
     Active Substance: DIVALPROEX SODIUM
     Indication: Schizoaffective disorder
     Dosage: 500 MILLIGRAM, BID
     Route: 065
  7. TRAZODONE [Concomitant]
     Active Substance: TRAZODONE HYDROCHLORIDE
     Indication: Schizoaffective disorder
     Dosage: 100 MILLIGRAM QHS
     Route: 065

REACTIONS (7)
  - Toxicity to various agents [Recovering/Resolving]
  - Choreoathetosis [Recovering/Resolving]
  - Drug level below therapeutic [Unknown]
  - Electrocardiogram QT prolonged [Unknown]
  - Sedation complication [Unknown]
  - Hypernatraemia [Recovered/Resolved]
  - Delirium [Recovered/Resolved]
